FAERS Safety Report 9828304 (Version 1)
Quarter: 2013Q4

REPORT INFORMATION
  Report Type: Spontaneous
  Country: US (occurrence: None)
  Receive Date: 20131120
  Receipt Date: 20131120
  Transmission Date: 20140711
  Serious: Yes (Other)
  Sender: FDA-Public Use
  Company Number: 1000049372

PATIENT
  Age: 80 Year
  Sex: Female

DRUGS (4)
  1. VIIBRYD [Suspect]
     Route: 048
     Dates: start: 20130919, end: 20130924
  2. GABAPENTIN [Concomitant]
  3. SIMVASTATIN [Concomitant]
  4. ZOLPIDEM [Concomitant]

REACTIONS (2)
  - Lethargy [None]
  - Somnolence [None]
